FAERS Safety Report 17902953 (Version 9)
Quarter: 2021Q1

REPORT INFORMATION
  Report Type: Other
  Country: DE (occurrence: DE)
  Receive Date: 20200617
  Receipt Date: 20210318
  Transmission Date: 20210419
  Serious: Yes (Hospitalization, Other)
  Sender: FDA-Public Use
  Company Number: DE-ROCHE-2138885

PATIENT
  Age: 50 Year
  Sex: Female

DRUGS (12)
  1. OCREVUS [Suspect]
     Active Substance: OCRELIZUMAB
     Indication: PROGRESSIVE RELAPSING MULTIPLE SCLEROSIS
     Dosage: ON 06/JUN/2018, SHE RECEIVED HER SECOND INFUSION.
     Route: 042
     Dates: start: 20180523
  2. CLOMIPRAMIN [Concomitant]
     Active Substance: CLOMIPRAMINE
     Dosage: 0?0?1
  3. OCREVUS [Suspect]
     Active Substance: OCRELIZUMAB
     Route: 042
     Dates: start: 20190603
  4. FAMPYRA [Concomitant]
     Active Substance: DALFAMPRIDINE
     Dosage: 10 (1?0?1)
  5. DEKRISTOL [Concomitant]
     Active Substance: CHOLECALCIFEROL
  6. CITALOPRAM [Concomitant]
     Active Substance: CITALOPRAM HYDROBROMIDE
  7. CLOMIPRAMIN [Concomitant]
     Active Substance: CLOMIPRAMINE
  8. OCREVUS [Suspect]
     Active Substance: OCRELIZUMAB
     Indication: SECONDARY PROGRESSIVE MULTIPLE SCLEROSIS
     Dosage: 03/JUN/2019: 600 MG
     Route: 042
     Dates: start: 20181204
  9. OCREVUS [Suspect]
     Active Substance: OCRELIZUMAB
     Route: 042
     Dates: start: 20191203
  10. CITALOPRAM [Concomitant]
     Active Substance: CITALOPRAM HYDROBROMIDE
  11. SATIVEX [Concomitant]
     Active Substance: NABIXIMOLS
  12. MAGNESIUM [Concomitant]
     Active Substance: MAGNESIUM

REACTIONS (30)
  - Ocular discomfort [Not Recovered/Not Resolved]
  - Dermatitis contact [Recovering/Resolving]
  - Aphasia [Not Recovered/Not Resolved]
  - Fluid retention [Recovered/Resolved]
  - Neuralgia [Recovering/Resolving]
  - Ataxia [Recovering/Resolving]
  - Bacterial infection [Recovered/Resolved]
  - Hypoaesthesia [Recovered/Resolved]
  - Myalgia [Recovered/Resolved]
  - Hemiparesis [Not Recovered/Not Resolved]
  - Fatigue [Recovered/Resolved]
  - Intentional product use issue [Unknown]
  - Fatigue [Recovered/Resolved]
  - Muscular weakness [Unknown]
  - Body temperature increased [Recovered/Resolved]
  - Hyperhidrosis [Recovered/Resolved]
  - Pruritus [Recovered/Resolved]
  - Fatigue [Recovered/Resolved]
  - Haemorrhoids [Recovered/Resolved]
  - Dizziness [Recovered/Resolved]
  - Fall [Unknown]
  - Apathy [Recovering/Resolving]
  - Erythema [Recovered/Resolved]
  - Off label use [Unknown]
  - Gait disturbance [Not Recovered/Not Resolved]
  - Haematoma [Recovered/Resolved]
  - Feeling hot [Recovered/Resolved]
  - Heart rate increased [Recovered/Resolved]
  - Insomnia [Recovered/Resolved]
  - Tinea pedis [Recovered/Resolved]

NARRATIVE: CASE EVENT DATE: 20180523
